FAERS Safety Report 7503554-1 (Version None)
Quarter: 2011Q1

REPORT INFORMATION
  Report Type: 
  Country: None (occurrence: None)
  Receive Date: 20110322
  Receipt Date: 20110210
  Transmission Date: 20110831
  Serious: Yes (Hospitalization)
  Sender: FDA-Public Use
  Company Number: UTC-005195

PATIENT
  Age: 56 Year
  Sex: Female

DRUGS (1)
  1. TYVASO [Suspect]
     Dosage: INHALATION
     Route: 055

REACTIONS (1)
  - SYNCOPE [None]
